FAERS Safety Report 21233057 (Version 1)
Quarter: 2022Q3

REPORT INFORMATION
  Report Type: Spontaneous
  Country: US (occurrence: US)
  Receive Date: 20220819
  Receipt Date: 20220819
  Transmission Date: 20221027
  Serious: No
  Sender: FDA-Public Use
  Company Number: US-PFIZER INC-PV202200045900

PATIENT

DRUGS (2)
  1. PAXLOVID [Suspect]
     Active Substance: NIRMATRELVIR\RITONAVIR
     Indication: COVID-19 treatment
     Dosage: UNK
     Dates: end: 20220804
  2. KEVZARA [Suspect]
     Active Substance: SARILUMAB
     Dosage: UNK

REACTIONS (2)
  - Malaise [Not Recovered/Not Resolved]
  - Illness [Unknown]
